FAERS Safety Report 5526040-7 (Version None)
Quarter: 2007Q4

REPORT INFORMATION
  Report Type: 
  Country: None (occurrence: None)
  Receive Date: 20071120
  Receipt Date: 20071105
  Transmission Date: 20080405
  Serious: Yes (Death)
  Sender: FDA-Public Use
  Company Number: 2007BI017902

PATIENT
  Age: 54 Year
  Sex: Female

DRUGS (9)
  1. AVONEX [Suspect]
     Indication: DRUG USE FOR UNKNOWN INDICATION
     Dosage: 30 UG, IM
     Route: 030
     Dates: start: 20061103
  2. CYMBALTA [Concomitant]
  3. LYRICA [Concomitant]
  4. FOSAMAX [Concomitant]
  5. LIPITOR [Concomitant]
  6. COZAAR [Concomitant]
  7. PAXIL CR [Concomitant]
  8. COUMADIN [Concomitant]
  9. SANCTURA [Concomitant]

REACTIONS (3)
  - ACUTE MYOCARDIAL INFARCTION [None]
  - BACK PAIN [None]
  - PAIN IN EXTREMITY [None]
